FAERS Safety Report 11437363 (Version 1)
Quarter: 2015Q3

REPORT INFORMATION
  Report Type: Spontaneous
  Country: US (occurrence: US)
  Receive Date: 20150821
  Receipt Date: 20150821
  Transmission Date: 20151125
  Serious: No
  Sender: FDA-Public Use
  Company Number: US-ELI_LILLY_AND_COMPANY-US200704003496

PATIENT
  Age: 40 Year
  Sex: Female

DRUGS (12)
  1. GEODON [Concomitant]
     Active Substance: ZIPRASIDONE HYDROCHLORIDE\ZIPRASIDONE MESYLATE
     Dosage: UNK, UNKNOWN
  2. ALLERGY RELIEF (CETIRIZINE) [Concomitant]
     Active Substance: CETIRIZINE HYDROCHLORIDE
     Dosage: UNK, UNKNOWN
  3. OXYCONTIN [Concomitant]
     Active Substance: OXYCODONE HYDROCHLORIDE
     Dosage: UNK, UNKNOWN
  4. PROTONIX [Concomitant]
     Active Substance: PANTOPRAZOLE SODIUM
     Dosage: UNK, UNKNOWN
  5. AXID [Concomitant]
     Active Substance: NIZATIDINE
     Dosage: UNK, UNKNOWN
  6. NAPROXEN. [Concomitant]
     Active Substance: NAPROXEN
     Dosage: UNK, UNKNOWN
  7. BENZATROPINE [Concomitant]
     Active Substance: BENZTROPINE
     Dosage: UNK, UNKNOWN
  8. CYMBALTA [Suspect]
     Active Substance: DULOXETINE HYDROCHLORIDE
     Indication: DEPRESSION
     Dosage: 60 MG, DAILY (1/D)
     Route: 048
     Dates: start: 20070402
  9. HYDROCHLOROTHIAZIDE. [Concomitant]
     Active Substance: HYDROCHLOROTHIAZIDE
     Dosage: UNK, UNKNOWN
  10. TRAZODIL [Concomitant]
     Dosage: UNK, UNKNOWN
  11. LAMICTAL [Concomitant]
     Active Substance: LAMOTRIGINE
     Dosage: UNK, UNKNOWN
  12. DOCUSATE [Concomitant]
     Active Substance: DOCUSATE
     Dosage: UNK, UNKNOWN

REACTIONS (1)
  - Urine amphetamine positive [Unknown]

NARRATIVE: CASE EVENT DATE: 200704
